FAERS Safety Report 7035374-9 (Version None)
Quarter: 2010Q4

REPORT INFORMATION
  Report Type: 
  Country: None (occurrence: None)
  Receive Date: 20101008
  Receipt Date: 20091019
  Transmission Date: 20110411
  Serious: Yes (Hospitalization)
  Sender: FDA-Public Use
  Company Number: PHHY2009NL55204

PATIENT
  Sex: Female

DRUGS (4)
  1. ZOMETA [Suspect]
     Indication: BREAST CANCER METASTATIC
     Dosage: 4 MG, UNK
     Dates: start: 20090824, end: 20090824
  2. ZOMETA [Suspect]
     Dosage: 4 MG, UNK
     Dates: start: 20091019, end: 20091019
  3. ZOMETA [Suspect]
     Dosage: 4 MG, UNK
     Dates: start: 20091113, end: 20091113
  4. APD [Concomitant]
     Indication: BREAST CANCER
     Dosage: UNK

REACTIONS (4)
  - CHOLELITHIASIS [None]
  - DYSGEUSIA [None]
  - HEADACHE [None]
  - NAUSEA [None]
